FAERS Safety Report 9665205 (Version 2)
Quarter: 2013Q4

REPORT INFORMATION
  Report Type: Report from Study
  Country: GB (occurrence: GB)
  Receive Date: 20131101
  Receipt Date: 20131206
  Transmission Date: 20140711
  Serious: Yes (Hospitalization)
  Sender: FDA-Public Use
  Company Number: GB-ROCHE-1296552

PATIENT
  Age: 49 Year
  Sex: Female

DRUGS (13)
  1. TOCILIZUMAB [Suspect]
     Indication: RHEUMATOID ARTHRITIS
     Dosage: DATE OF MOST RECENT DOSE WAS 20/AUG/2013
     Route: 065
     Dates: start: 20130212
  2. METHOTREXATE [Concomitant]
     Route: 048
     Dates: start: 201210
  3. METHOTREXATE [Concomitant]
     Dosage: REDUCED DOES
     Route: 048
  4. FERROUS SULFATE [Concomitant]
     Route: 048
  5. FOLIC ACID [Concomitant]
     Route: 048
  6. LANSOPRAZOLE [Concomitant]
     Route: 048
  7. AMLODIPINE [Concomitant]
     Route: 048
  8. TRAMADOL [Concomitant]
     Route: 048
  9. BUMETANIDE [Concomitant]
     Route: 048
  10. SINGULAR [Concomitant]
     Dosage: AT NIGHT
     Route: 048
  11. VENTOLIN INHALER [Concomitant]
     Dosage: 2 PUFFS AS NEEDED
     Route: 065
  12. FLUTICASONE [Concomitant]
     Route: 065
  13. SALMETEROL [Concomitant]
     Dosage: 2 PUFFS
     Route: 065

REACTIONS (2)
  - Pneumonia [Recovered/Resolved]
  - Pleural effusion [Unknown]
